FAERS Safety Report 15759898 (Version 1)
Quarter: 2018Q4

REPORT INFORMATION
  Report Type: Report from Study
  Country: FR (occurrence: FR)
  Receive Date: 20181226
  Receipt Date: 20181226
  Transmission Date: 20190205
  Serious: Yes (Life-Threatening, Other)
  Sender: FDA-Public Use
  Company Number: FR-ACCORD-097566

PATIENT
  Age: 50 Year
  Sex: Female

DRUGS (3)
  1. ETOPOSIDE. [Suspect]
     Active Substance: ETOPOSIDE
     Indication: ADRENOCORTICAL CARCINOMA
     Dosage: 150-300 MG/M2
     Route: 042
  2. MITOTANE [Interacting]
     Active Substance: MITOTANE
     Indication: ADRENOCORTICAL CARCINOMA
     Dosage: 13.8-22.6 MG/L
  3. CISPLATIN. [Concomitant]
     Active Substance: CISPLATIN
     Indication: ADRENOCORTICAL CARCINOMA

REACTIONS (2)
  - Febrile bone marrow aplasia [Recovering/Resolving]
  - Drug interaction [Unknown]
